FAERS Safety Report 21800178 (Version 1)
Quarter: 2022Q4

REPORT INFORMATION
  Report Type: Spontaneous
  Country: US (occurrence: None)
  Receive Date: 20221229
  Receipt Date: 20221229
  Transmission Date: 20230113
  Serious: Yes (Hospitalization)
  Sender: FDA-Public Use
  Company Number: None

PATIENT
  Age: 51 Year
  Sex: Female

DRUGS (11)
  1. ENTYVIO [Suspect]
     Active Substance: VEDOLIZUMAB
     Indication: Colitis
     Dosage: OTHER FREQUENCY : EVERY 28 DAYS;?
     Route: 042
     Dates: start: 20211110
  2. ACETAMINOPHEN TAB [Concomitant]
  3. CYCLOBENZAPR TAB [Concomitant]
  4. DICYCLOMINE TAB [Concomitant]
  5. DIPHENHYDRAMINE CAP [Concomitant]
  6. EPINEPHRINE [Concomitant]
     Active Substance: EPINEPHRINE
  7. MELOXICAM TAB [Concomitant]
  8. SODIUM CHLORIDE [Concomitant]
     Active Substance: SODIUM CHLORIDE
  9. SOD CHL STRL FLSH [Concomitant]
  10. STERILE WATER SDV LF [Concomitant]
  11. VITAMIN D3 CAP [Concomitant]

REACTIONS (3)
  - Drug ineffective [None]
  - Therapy interrupted [None]
  - Therapy change [None]

NARRATIVE: CASE EVENT DATE: 20221101
